FAERS Safety Report 26213967 (Version 1)
Quarter: 2025Q4

REPORT INFORMATION
  Report Type: Spontaneous
  Country: IR (occurrence: IR)
  Receive Date: 20251230
  Receipt Date: 20251230
  Transmission Date: 20260118
  Serious: Yes (Hospitalization)
  Sender: MYLAN
  Company Number: IR-MYLANLABS-2025M1110100

PATIENT
  Age: 58 Year
  Sex: Male

DRUGS (7)
  1. OXALIPLATIN [Suspect]
     Active Substance: OXALIPLATIN
     Indication: Rectal adenocarcinoma
     Dosage: 190 MILLIGRAM ~ON DAY 1,  INTRAVENOUS INFUSION
  2. OXALIPLATIN [Suspect]
     Active Substance: OXALIPLATIN
     Dosage: UNK, ADJUVANT CHEMOTHERAPY WITH A MODIFIED FOLFOX6
  3. CAPECITABINE [Suspect]
     Active Substance: CAPECITABINE
     Indication: Rectal adenocarcinoma
     Dosage: 1500 MILLIGRAM, BID, STARTING FROM THE EVENING OF DAY 1 UNTIL THE MORNING OF DAY 15, REPEATED..
     Route: 061
  4. CAPECITABINE [Suspect]
     Active Substance: CAPECITABINE
     Dosage: 1500 MILLIGRAM, BID, CAPECITABINE MONOTHERAPY AT 1500MG FOR 14 DAYS IN A 21-DAY CYCLE
     Route: 061
  5. DEXAMETHASONE [Concomitant]
     Active Substance: DEXAMETHASONE
     Indication: Premedication
     Dosage: 8 MILLIGRAM
  6. GRANISETRON [Concomitant]
     Active Substance: GRANISETRON
     Indication: Premedication
     Dosage: 3 MILLIGRAM
  7. CHLORPHENIRAMINE [Concomitant]
     Active Substance: CHLORPHENIRAMINE
     Indication: Premedication
     Dosage: 10 MILLIGRAM

REACTIONS (1)
  - Generalised tonic-clonic seizure [Recovered/Resolved]

NARRATIVE: CASE EVENT DATE: 20241117
